FAERS Safety Report 11073048 (Version 1)
Quarter: 2015Q2

REPORT INFORMATION
  Report Type: Spontaneous
  Country: SE (occurrence: SE)
  Receive Date: 20150428
  Receipt Date: 20150428
  Transmission Date: 20150821
  Serious: Yes (Other)
  Sender: FDA-Public Use
  Company Number: SE-GLAXOSMITHKLINE-SE2015GSK051918

PATIENT
  Age: 35 Year
  Sex: Female

DRUGS (8)
  1. DYMISTA [Concomitant]
     Active Substance: AZELASTINE HYDROCHLORIDE\FLUTICASONE PROPIONATE
  2. LOMUDAL [Concomitant]
     Dosage: UNK, PRN
  3. CETIRIZINE [Concomitant]
     Active Substance: CETIRIZINE HYDROCHLORIDE
  4. FICORTRIL [Concomitant]
     Dosage: UNK, PRN
  5. PROPYLESS [Concomitant]
     Dosage: UNK, PRN
  6. RELVAR ELLIPTA [Suspect]
     Active Substance: FLUTICASONE FUROATE\VILANTEROL TRIFENATATE
     Indication: ASTHMA
     Dosage: UNK, 1D
     Route: 055
     Dates: start: 20150330, end: 20150406
  7. ELOCON [Concomitant]
     Active Substance: MOMETASONE FUROATE
     Dosage: UNK, PRN
  8. PROTOPIC [Concomitant]
     Active Substance: TACROLIMUS
     Dosage: UNK, PRN

REACTIONS (1)
  - Stomatitis [Recovered/Resolved]

NARRATIVE: CASE EVENT DATE: 20150331
